FAERS Safety Report 4341090-4 (Version None)
Quarter: 2004Q2

REPORT INFORMATION
  Report Type: 
  Country: None (occurrence: None)
  Receive Date: 20040419
  Receipt Date: 20040409
  Transmission Date: 20050107
  Serious: Yes (Hospitalization)
  Sender: FDA-Public Use
  Company Number: JP-ROCHE-364317

PATIENT
  Age: 19 Year
  Sex: Male
  Weight: 76.1 kg

DRUGS (4)
  1. TAMIFLU [Suspect]
     Route: 048
     Dates: start: 20040214, end: 20040217
  2. FLOMOX [Concomitant]
     Route: 048
  3. MELBIN [Concomitant]
     Route: 048
  4. AMARYL [Concomitant]
     Route: 048

REACTIONS (8)
  - CONFUSIONAL STATE [None]
  - DELIRIUM [None]
  - DELUSION [None]
  - EXCITABILITY [None]
  - FEAR [None]
  - ILLUSION [None]
  - IRRITABILITY [None]
  - OBSESSIVE-COMPULSIVE DISORDER [None]
